FAERS Safety Report 4847105-9 (Version None)
Quarter: 2005Q4

REPORT INFORMATION
  Report Type: 
  Country: None (occurrence: None)
  Receive Date: 20051205
  Receipt Date: 20051121
  Transmission Date: 20060501
  Serious: Yes (Disabling, Other)
  Sender: FDA-Public Use
  Company Number: 2005159690

PATIENT
  Sex: Female

DRUGS (2)
  1. NEURONTIN [Suspect]
     Indication: INSOMNIA
     Dates: start: 20020101
  2. NEURONTIN [Suspect]
     Indication: PAIN
     Dates: start: 20020101

REACTIONS (3)
  - ARTHROPATHY [None]
  - DYSKINESIA [None]
  - FALL [None]
